FAERS Safety Report 5527960-X (Version None)
Quarter: 2007Q4

REPORT INFORMATION
  Report Type: 
  Country: None (occurrence: None)
  Receive Date: 20071109
  Receipt Date: 20070518
  Transmission Date: 20080405
  Serious: Yes (Other)
  Sender: FDA-Public Use
  Company Number: PHEH2007US07652

PATIENT
  Age: 58 Year
  Sex: Female
  Weight: 63.5 kg

DRUGS (9)
  1. ESTRADERM [Suspect]
     Indication: MENOPAUSE
     Dosage: 0.05MG, TOPICAL
     Route: 061
     Dates: start: 19950101, end: 19991201
  2. PROVERA [Suspect]
     Indication: MENOPAUSE
     Dosage: 2.5MG
     Dates: start: 19930401, end: 19991201
  3. PREMARIN [Suspect]
     Indication: MENOPAUSE
     Dosage: 0.625MG
     Dates: start: 19930401, end: 19950101
  4. PLAQUENIL [Concomitant]
  5. ULTRAM [Concomitant]
  6. ZOLOFT [Concomitant]
  7. HYDROCHLOROTHIAZIDE [Concomitant]
  8. CELEBREX [Concomitant]
  9. ALPRAZOLAM [Concomitant]

REACTIONS (16)
  - ALOPECIA [None]
  - ALOPECIA EFFLUVIUM [None]
  - ANXIETY [None]
  - BREAST CANCER [None]
  - BREAST HYPERPLASIA [None]
  - BREAST RECONSTRUCTION [None]
  - CERVICITIS [None]
  - CHEMOTHERAPY [None]
  - COLON POLYPECTOMY [None]
  - DEPRESSION [None]
  - HYPERTENSION [None]
  - HYSTERECTOMY [None]
  - MASTECTOMY [None]
  - SALPINGO-OOPHORECTOMY BILATERAL [None]
  - UTERINE LEIOMYOMA [None]
  - UTERINE POLYP [None]
